FAERS Safety Report 10024973 (Version 3)
Quarter: 2014Q2

REPORT INFORMATION
  Report Type: Spontaneous
  Country: US (occurrence: None)
  Receive Date: 20140318
  Receipt Date: 20140421
  Transmission Date: 20141212
  Serious: Yes (Hospitalization, Other)
  Sender: FDA-Public Use
  Company Number: 2012-003479

PATIENT
  Age: 83 Year
  Sex: Female
  Weight: 80.3 kg

DRUGS (37)
  1. ACTONEL [Suspect]
     Indication: OSTEOPOROSIS
     Dosage: 35 MG ONCE WEEKLY, ORAL
     Route: 048
     Dates: start: 200306, end: 200709
  2. ACTONEL [Suspect]
     Indication: OSTEOPENIA
     Dosage: 35 MG ONCE WEEKLY, ORAL
     Route: 048
     Dates: start: 200306, end: 200709
  3. ACTONEL [Suspect]
     Indication: OSTEOPOROSIS PROPHYLAXIS
     Dosage: 35 MG ONCE WEEKLY, ORAL
     Route: 048
     Dates: start: 200306, end: 200709
  4. FOSAMAX [Suspect]
     Indication: OSTEOPOROSIS
     Dosage: UNKNOWN, ORAL
     Route: 048
     Dates: start: 200709, end: 201105
  5. FOSAMAX [Suspect]
     Indication: OSTEOPENIA
     Dosage: UNKNOWN, ORAL
     Route: 048
     Dates: start: 200709, end: 201105
  6. FOSAMAX [Suspect]
     Indication: OSTEOPOROSIS PROPHYLAXIS
     Dosage: UNKNOWN, ORAL
     Route: 048
     Dates: start: 200709, end: 201105
  7. COREG (CARVEDILOL) [Concomitant]
  8. ATENOLOL (ATENOLOL) [Concomitant]
  9. LISINOPRIL (LISINOPRIL) [Concomitant]
  10. HYDROCHLOROTHIAZIDE (HYDROCHLOROTHIAZIDE) [Concomitant]
  11. ASA (ACETYLSALICYLIC ACID) [Concomitant]
  12. PLAVIX (CLOPIDOGREL BISULFATE) (CLOPIDOGREL BISULFATE) [Concomitant]
  13. LASIX /00032601/ (FUROSEMIDE) UNK, UNKUNK [Concomitant]
  14. LOVASTATIN (LOVASTATIN) [Concomitant]
  15. ZOCOR (SIMVASTATIN) [Concomitant]
  16. LIPITOR (ATORVASTATIN CALCIUM) [Concomitant]
  17. ARICEPT (DONEPEZIL HYDROCHLORIDE) [Concomitant]
  18. ANTIVERT /00072802/ (MECLOZINE HYDROCHLORIDE) [Concomitant]
  19. ALEVE (NAPROXEN SODIUM) [Concomitant]
  20. PIROXICAM (PIROXICAM) [Concomitant]
  21. INDOCIN /00003801/ (INDOMETACIN) [Concomitant]
  22. PRILOSEC /00661201/ (OMEPRZOLE) [Concomitant]
  23. MACRODANTIN (NITROFURANTOIN) [Concomitant]
  24. TRIMETHOPRIM (TRIMETHOPRIM) [Concomitant]
  25. DITROPAN XL (OXYBUTYNIN HYDROCHLORIDE) [Concomitant]
  26. CALCIUM (CALCIUM) [Concomitant]
  27. CENTRUM /00554501/ (MINERALS NOS, VITAMINS NOS) [Concomitant]
  28. FISH OIL (FISH OIL) [Concomitant]
  29. COLACE (DOCUSATE SODIUM) [Concomitant]
  30. MAALOX /00082501/(ALUMINIM HYDROXIDE, MAGNESIUM HYDROXIDE) [Concomitant]
  31. PHENERGAN /00033001/(PROMETHAZINE) [Concomitant]
  32. TYLENOL EXTRA STRENGTH (PARACETAMOL) [Concomitant]
  33. NITROGLYCERIN (GLYCERYL TRINITRATE) SPRAY [Concomitant]
  34. VITAMIN E /00110501/(TOCOPHEROL) [Concomitant]
  35. PROTONIX (PANTOPRAZOLE SODIUM SESQUIHYDRATE) [Concomitant]
  36. CIPRO /00697201/(CIPROFLOXACIN) [Concomitant]
  37. RESTORIL /00393701/(TEMAZEPAM) [Concomitant]

REACTIONS (20)
  - Fracture displacement [None]
  - Fall [None]
  - Femur fracture [None]
  - Arthralgia [None]
  - Bone disorder [None]
  - Osteogenesis imperfecta [None]
  - Low turnover osteopathy [None]
  - Stress fracture [None]
  - Multiple fractures [None]
  - Gait disturbance [None]
  - Nervous system disorder [None]
  - Bursitis [None]
  - Pubis fracture [None]
  - Aortic aneurysm [None]
  - Lumbar spinal stenosis [None]
  - Cardiac failure congestive [None]
  - Myocardial infarction [None]
  - Depression [None]
  - Weight decreased [None]
  - Acetabulum fracture [None]
